FAERS Safety Report 9991627 (Version 2)
Quarter: 2014Q2

REPORT INFORMATION
  Report Type: Spontaneous
  Country: US (occurrence: US)
  Receive Date: 20140310
  Receipt Date: 20140602
  Transmission Date: 20141212
  Serious: Yes (Other)
  Sender: FDA-Public Use
  Company Number: US-BAYER-2014-034922

PATIENT
  Age: 28 Year
  Sex: Female
  Weight: 47 kg

DRUGS (1)
  1. MIRENA [Suspect]
     Indication: CONTRACEPTION
     Dosage: 20 MCG/24HR, CONT
     Route: 015
     Dates: start: 20131226, end: 20131226

REACTIONS (4)
  - Embedded device [None]
  - Procedural pain [Recovered/Resolved]
  - Complication of device insertion [None]
  - Procedural haemorrhage [Recovered/Resolved]
